FAERS Safety Report 7361460-X (Version None)
Quarter: 2011Q1

REPORT INFORMATION
  Report Type: 
  Country: None (occurrence: None)
  Receive Date: 20110318
  Receipt Date: 20110315
  Transmission Date: 20110831
  Serious: Yes (Hospitalization)
  Sender: FDA-Public Use
  Company Number: DE-ABBOTT-11P-062-0703449-00

PATIENT
  Sex: Female

DRUGS (12)
  1. PREDNISOLONE [Concomitant]
     Indication: PRODUCT USED FOR UNKNOWN INDICATION
     Dosage: 10 - 15 MG/DAY
  2. BISOPROLOL [Suspect]
     Indication: PRODUCT USED FOR UNKNOWN INDICATION
  3. LASIX [Concomitant]
     Indication: PRODUCT USED FOR UNKNOWN INDICATION
  4. HUMIRA [Suspect]
     Indication: RHEUMATOID ARTHRITIS
     Route: 058
     Dates: start: 20061201, end: 20091101
  5. METHOTREXATE [Concomitant]
     Indication: PRODUCT USED FOR UNKNOWN INDICATION
     Route: 058
     Dates: start: 20051101
  6. PANTOZOL [Concomitant]
     Indication: PRODUCT USED FOR UNKNOWN INDICATION
  7. ACTONEL [Concomitant]
     Indication: PRODUCT USED FOR UNKNOWN INDICATION
  8. TOREM [Concomitant]
     Indication: PRODUCT USED FOR UNKNOWN INDICATION
  9. LEVOTHYROXINE SODIUM [Concomitant]
     Indication: PRODUCT USED FOR UNKNOWN INDICATION
  10. LEDERFOLAT [Concomitant]
     Indication: PRODUCT USED FOR UNKNOWN INDICATION
  11. TOLPERISONE [Concomitant]
     Indication: PRODUCT USED FOR UNKNOWN INDICATION
  12. VIT B6/B12 [Concomitant]
     Indication: PRODUCT USED FOR UNKNOWN INDICATION
     Route: 030

REACTIONS (8)
  - ARTHROPATHY [None]
  - SUICIDE ATTEMPT [None]
  - DEPRESSION [None]
  - SYNOVITIS [None]
  - ARTHRITIS [None]
  - PSYCHOTHERAPY [None]
  - ARTHRALGIA [None]
  - OEDEMA [None]
